FAERS Safety Report 8472448-X (Version None)
Quarter: 2012Q2

REPORT INFORMATION
  Report Type: 
  Country: None (occurrence: None)
  Receive Date: 20120627
  Receipt Date: 20120113
  Transmission Date: 20120825
  Serious: No
  Sender: FDA-Public Use
  Company Number: US-AMGEN-USASP2011053496

PATIENT
  Age: 86 Year
  Sex: Male
  Weight: 71 kg

DRUGS (20)
  1. PROCRIT [Suspect]
     Indication: ANAEMIA
     Dosage: UNK UNK, QWK
     Dates: start: 20100107, end: 20100923
  2. VITAMIN B-12 [Concomitant]
     Dosage: UNK
     Dates: start: 20100903, end: 20101216
  3. VITAMIN B-12 [Concomitant]
     Dosage: UNK
     Dates: start: 20110310
  4. BENICAR [Concomitant]
     Dosage: 40 MG, QD
     Route: 048
     Dates: start: 20100321
  5. POTASSIUM CHLORIDE DENOLIN [Concomitant]
     Dosage: 10 MEQ, QD
     Route: 048
     Dates: start: 20110831
  6. SPIRONOLACTONE [Concomitant]
     Dosage: 25 MG, QD
     Route: 048
     Dates: start: 20110831
  7. ASPIRIN [Concomitant]
     Dosage: 81 MG, QD
     Route: 048
     Dates: start: 20100312
  8. PRESERVISION EYE VITAMIN AND MINERAL SUPPL. [Concomitant]
     Dosage: 226 MG, BID
     Route: 048
     Dates: start: 20100312
  9. VITAMIN D [Concomitant]
     Dosage: UNK UNK, QD
     Route: 048
     Dates: start: 20100312
  10. PROCRIT [Suspect]
     Dosage: UNK UNK, Q2WK
     Dates: start: 20101007
  11. FOSAMAX [Concomitant]
     Dosage: 70 MG, QWK
     Route: 048
     Dates: start: 20100312
  12. MULTI-VITAMIN [Concomitant]
     Dosage: UNK
     Dates: start: 20110831
  13. NIFEDIPINE [Concomitant]
     Dosage: 60 MG, QD
     Route: 048
     Dates: start: 20100312
  14. AVODART [Concomitant]
     Dosage: 0.5 MG, QD
     Route: 048
     Dates: start: 20110831
  15. CALCIUM CARBONATE [Concomitant]
     Dosage: 1250 MG, BID
     Route: 048
     Dates: start: 20100312
  16. MAGNESIUM OXIDE [Concomitant]
     Dosage: 400 MG, BID
     Route: 048
     Dates: start: 20100527
  17. COLCHICINE [Concomitant]
     Dosage: 0.6 MG, QWK
     Route: 048
     Dates: start: 20100312
  18. TEKTURNA [Concomitant]
     Dosage: 150 MG, BID
     Route: 048
     Dates: start: 20100312
  19. PROCRIT [Suspect]
     Indication: MYELODYSPLASTIC SYNDROME
     Dosage: UNK
     Route: 058
     Dates: start: 20050101
  20. LEXAPRO [Concomitant]
     Dosage: 10 MG, QD
     Route: 048
     Dates: start: 20110831

REACTIONS (3)
  - BODY HEIGHT DECREASED [None]
  - HAEMOGLOBIN DECREASED [None]
  - HAEMOGLOBIN INCREASED [None]
